FAERS Safety Report 17867302 (Version 1)
Quarter: 2020Q2

REPORT INFORMATION
  Report Type: Spontaneous
  Country: CN (occurrence: CN)
  Receive Date: 20200605
  Receipt Date: 20200605
  Transmission Date: 20200714
  Serious: Yes (Hospitalization)
  Sender: FDA-Public Use
  Company Number: CN-ASTRAZENECA-2020SE73074

PATIENT
  Sex: Female
  Weight: 55 kg

DRUGS (2)
  1. ONGLYZA [Suspect]
     Active Substance: SAXAGLIPTIN HYDROCHLORIDE
     Indication: HYPOGLYCAEMIA
     Route: 048
     Dates: start: 20200414, end: 20200513
  2. GLIMEPIRIDE. [Suspect]
     Active Substance: GLIMEPIRIDE
     Indication: HYPOGLYCAEMIA
     Route: 048
     Dates: start: 20200414, end: 20200513

REACTIONS (2)
  - Vomiting [Unknown]
  - Dizziness [Unknown]
